FAERS Safety Report 10056014 (Version 4)
Quarter: 2014Q2

REPORT INFORMATION
  Report Type: Report from Study
  Country: US (occurrence: US)
  Receive Date: 20140403
  Receipt Date: 20140624
  Transmission Date: 20141212
  Serious: Yes (Hospitalization, Other)
  Sender: FDA-Public Use
  Company Number: US-JNJFOC-20140400649

PATIENT
  Age: 77 Year
  Sex: Female
  Weight: 77.11 kg

DRUGS (12)
  1. XARELTO [Suspect]
     Indication: CEREBROVASCULAR ACCIDENT
     Route: 048
  2. XARELTO [Suspect]
     Indication: CEREBROVASCULAR ACCIDENT
     Route: 048
     Dates: start: 201302
  3. XARELTO [Suspect]
     Indication: CEREBROVASCULAR ACCIDENT
     Route: 048
     Dates: start: 20140403
  4. XARELTO [Suspect]
     Indication: PULMONARY EMBOLISM
     Route: 048
     Dates: start: 20140403
  5. XARELTO [Suspect]
     Indication: PULMONARY EMBOLISM
     Route: 048
     Dates: start: 201302
  6. XARELTO [Suspect]
     Indication: PULMONARY EMBOLISM
     Route: 048
  7. PRAVASTATIN [Concomitant]
     Indication: BLOOD CHOLESTEROL ABNORMAL
     Dosage: 80 DOSE FOR YEARS
     Route: 065
  8. BISOPROLOL [Concomitant]
     Indication: CARDIAC DISORDER
     Dosage: FOR YEARS
     Route: 065
  9. OMEPRAZOLE [Concomitant]
     Indication: GASTROOESOPHAGEAL REFLUX DISEASE
     Dosage: FOR YEARS
     Route: 065
  10. LORAZEPAM [Concomitant]
     Indication: STRESS
     Dosage: 4 YEARS NOW
     Route: 065
  11. VITAMIN B COMPLEX [Concomitant]
     Route: 065
  12. MULTIVITAMINS [Concomitant]
     Route: 065

REACTIONS (5)
  - Rectal haemorrhage [Recovered/Resolved]
  - Haemorrhoidal haemorrhage [Unknown]
  - Inappropriate schedule of drug administration [Not Recovered/Not Resolved]
  - Fatigue [Not Recovered/Not Resolved]
  - Cough [Recovered/Resolved]
